FAERS Safety Report 5378842-8 (Version None)
Quarter: 2007Q3

REPORT INFORMATION
  Report Type: 
  Country: None (occurrence: None)
  Receive Date: 20070705
  Receipt Date: 20070626
  Transmission Date: 20080115
  Serious: Yes (Hospitalization, Other)
  Sender: FDA-Public Use
  Company Number: US-AMGEN-US231537

PATIENT
  Sex: Male
  Weight: 99.1 kg

DRUGS (5)
  1. ARANESP [Suspect]
     Indication: ANAEMIA
  2. LASIX [Concomitant]
  3. DARVOCET [Concomitant]
  4. DOXAZOSIN MESYLATE [Concomitant]
  5. POTASSIUM ACETATE [Concomitant]

REACTIONS (4)
  - DRUG INEFFECTIVE [None]
  - ERYTHROPOIESIS ABNORMAL [None]
  - HOSPITALISATION [None]
  - THERAPEUTIC RESPONSE DECREASED [None]
